FAERS Safety Report 9496871 (Version 1)
Quarter: 2013Q3

REPORT INFORMATION
  Report Type: Spontaneous
  Country: US (occurrence: None)
  Receive Date: 20130903
  Receipt Date: 20130903
  Transmission Date: 20140515
  Serious: Yes (Life-Threatening, Disabling, Other)
  Sender: FDA-Public Use
  Company Number: None

PATIENT
  Age: 45 Year
  Sex: Female
  Weight: 63.5 kg

DRUGS (1)
  1. LEVAQUIN [Suspect]
     Indication: SINUSITIS
     Dosage: 5 PILLS MY LIFE IS OVER, ONCE DAY TAKEN BY MOUTH
     Route: 048

REACTIONS (4)
  - Bedridden [None]
  - Impaired work ability [None]
  - Abasia [None]
  - Respiratory disorder [None]
